FAERS Safety Report 11937965 (Version 1)
Quarter: 2016Q1

REPORT INFORMATION
  Report Type: Spontaneous
  Country: US (occurrence: None)
  Receive Date: 20160120
  Receipt Date: 20160120
  Transmission Date: 20160526
  Serious: Yes (Death)
  Sender: FDA-Public Use
  Company Number: None

PATIENT
  Age: 60 Year
  Sex: Female

DRUGS (7)
  1. VITAMIN D3 [Concomitant]
     Active Substance: CHOLECALCIFEROL
  2. DEXAMETHASON [Concomitant]
     Active Substance: DEXAMETHASONE
  3. VITAMIN B12 [Concomitant]
     Active Substance: CYANOCOBALAMIN
  4. LEXAPRO [Concomitant]
     Active Substance: ESCITALOPRAM OXALATE
  5. IRON [Concomitant]
     Active Substance: IRON
  6. GLEOSTINE [Suspect]
     Active Substance: LOMUSTINE
     Indication: BRAIN NEOPLASM MALIGNANT
     Dosage: 60MG EVERY 6 WEEKS PO
     Route: 048
     Dates: start: 20151128, end: 20151226
  7. AVASTIN [Concomitant]
     Active Substance: BEVACIZUMAB

REACTIONS (2)
  - Cardio-respiratory arrest [None]
  - Unevaluable event [None]

NARRATIVE: CASE EVENT DATE: 20151226
